FAERS Safety Report 22195857 (Version 1)
Quarter: 2023Q2

REPORT INFORMATION
  Report Type: Spontaneous
  Country: US (occurrence: US)
  Receive Date: 20230411
  Receipt Date: 20230411
  Transmission Date: 20230722
  Serious: No
  Sender: FDA-Public Use
  Company Number: US-ELI_LILLY_AND_COMPANY-US202304003101

PATIENT
  Age: 45 Year
  Sex: Female

DRUGS (2)
  1. MOUNJARO [Suspect]
     Active Substance: TIRZEPATIDE
     Indication: Weight decreased
     Dosage: 10 MG, UNKNOWN
     Route: 058
  2. MOUNJARO [Suspect]
     Active Substance: TIRZEPATIDE
     Indication: Weight decreased
     Dosage: UNK UNK, UNKNOWN
     Route: 058

REACTIONS (6)
  - Incorrect dose administered [Unknown]
  - Off label use [Unknown]
  - Dyspepsia [Recovered/Resolved]
  - Injection site pain [Unknown]
  - Injection site rash [Recovered/Resolved]
  - Injection site erythema [Recovered/Resolved]

NARRATIVE: CASE EVENT DATE: 20230327
